FAERS Safety Report 8333826-2 (Version None)
Quarter: 2012Q2

REPORT INFORMATION
  Report Type: 
  Country: None (occurrence: None)
  Receive Date: 20120503
  Receipt Date: 20120427
  Transmission Date: 20120825
  Serious: Yes (Other)
  Sender: FDA-Public Use
  Company Number: US-AMGEN-USASP2012023163

PATIENT
  Age: 80 Year
  Sex: Male
  Weight: 70.295 kg

DRUGS (1)
  1. NPLATE [Suspect]
     Indication: THROMBOCYTOPENIA
     Dosage: 280 MUG, QWK
     Route: 058
     Dates: start: 20120206, end: 20120409

REACTIONS (4)
  - PLATELET COUNT DECREASED [None]
  - SUBARACHNOID HAEMORRHAGE [None]
  - BONE PAIN [None]
  - LEUKAEMIA [None]
